FAERS Safety Report 15070161 (Version 1)
Quarter: 2018Q3

REPORT INFORMATION
  Report Type: Spontaneous
  Country: US (occurrence: US)
  Receive Date: 20180626
  Receipt Date: 20180626
  Transmission Date: 20181010
  Serious: Yes (Other)
  Sender: FDA-Public Use
  Company Number: US-GILEAD-2018-0344582

PATIENT
  Age: 61 Year

DRUGS (1)
  1. YESCARTA [Suspect]
     Active Substance: AXICABTAGENE CILOLEUCEL
     Indication: DIFFUSE LARGE B-CELL LYMPHOMA
     Dosage: UNK
     Dates: start: 20180110, end: 20180110

REACTIONS (13)
  - Tachycardia [Recovered/Resolved]
  - Hypotension [Recovered/Resolved]
  - Incontinence [None]
  - Agitation [Recovered/Resolved]
  - Somnolence [None]
  - Pyrexia [Recovered/Resolved]
  - Confusional state [None]
  - Aphasia [None]
  - Neurotoxicity [Recovered/Resolved]
  - Cytokine release syndrome [Recovered/Resolved]
  - Encephalopathy [Recovered/Resolved]
  - Amnesia [None]
  - Tachypnoea [Recovered/Resolved]

NARRATIVE: CASE EVENT DATE: 20180111
